FAERS Safety Report 7199457-5 (Version None)
Quarter: 2010Q4

REPORT INFORMATION
  Report Type: 
  Country: None (occurrence: None)
  Receive Date: 20101228
  Receipt Date: 20101214
  Transmission Date: 20110411
  Serious: Yes (Disabling, Other)
  Sender: FDA-Public Use
  Company Number: PHHY2010FR80447

PATIENT
  Sex: Male
  Weight: 92 kg

DRUGS (4)
  1. RASILEZ [Suspect]
     Indication: HYPERTENSION
     Dosage: 300 MG (1 TABLET DAILY)
     Route: 048
     Dates: start: 20100116, end: 20101106
  2. LASIX [Concomitant]
     Indication: HYPERTENSION
     Dosage: 10 MG DAILY
     Dates: start: 20091121
  3. LERCANIDIPINE [Concomitant]
     Indication: HYPERTENSION
     Dosage: 10 MG DAILY
     Dates: start: 20080711
  4. BISOPROLOL FUMARATE [Concomitant]
     Indication: HYPERTENSION
     Dosage: 10 MG DAILY
     Dates: start: 20080304

REACTIONS (4)
  - BONE MARROW OEDEMA [None]
  - FRACTURE [None]
  - STRESS FRACTURE [None]
  - VITAMIN D DEFICIENCY [None]
